FAERS Safety Report 5750680-3 (Version None)
Quarter: 2008Q2

REPORT INFORMATION
  Report Type: 
  Country: None (occurrence: None)
  Receive Date: 20080528
  Receipt Date: 20080519
  Transmission Date: 20081010
  Serious: Yes (Hospitalization, Other)
  Sender: FDA-Public Use
  Company Number: US-JNJFOC-20080504343

PATIENT
  Sex: Male

DRUGS (4)
  1. DURAGESIC-100 [Suspect]
     Dosage: TWO 12.5 UG PATCHES
     Route: 062
  2. DURAGESIC-100 [Suspect]
     Route: 062
  3. DURAGESIC-100 [Suspect]
     Indication: PAIN
     Route: 062
  4. FENTANYL TRANSDERMAL SYSTEM [Suspect]
     Indication: PAIN
     Route: 062

REACTIONS (5)
  - ATRIAL FIBRILLATION [None]
  - DEPENDENCE [None]
  - DRUG TOLERANCE INCREASED [None]
  - INCORRECT DRUG ADMINISTRATION DURATION [None]
  - WITHDRAWAL SYNDROME [None]
